FAERS Safety Report 6258155-2 (Version None)
Quarter: 2009Q3

REPORT INFORMATION
  Report Type: 
  Country: None (occurrence: None)
  Receive Date: 20090707
  Receipt Date: 20090629
  Transmission Date: 20100115
  Serious: Yes (Other)
  Sender: FDA-Public Use
  Company Number: US-BAYER-200925027NA

PATIENT
  Age: 67 Year
  Sex: Female

DRUGS (1)
  1. CIPRO [Suspect]
     Indication: SINUSITIS
     Dosage: TOTAL DAILY DOSE: 1000 MG  UNIT DOSE: 500 MG
     Route: 048

REACTIONS (7)
  - ASTHENIA [None]
  - CONFUSIONAL STATE [None]
  - DYSGRAPHIA [None]
  - HEADACHE [None]
  - HYPOAESTHESIA [None]
  - SENSORY DISTURBANCE [None]
  - SENSORY LOSS [None]
